FAERS Safety Report 11842221 (Version 2)
Quarter: 2016Q3

REPORT INFORMATION
  Report Type: Spontaneous
  Country: JP (occurrence: JP)
  Receive Date: 20151216
  Receipt Date: 20160707
  Transmission Date: 20161109
  Serious: Yes (Life-Threatening, Hospitalization, Other)
  Sender: FDA-Public Use
  Company Number: JP-GILEAD-2015-0185751

PATIENT
  Age: 77 Year
  Sex: Female
  Weight: 48 kg

DRUGS (7)
  1. MAINTATE [Concomitant]
     Active Substance: BISOPROLOL FUMARATE
     Dosage: UNK
     Route: 065
  2. SOVALDI [Suspect]
     Active Substance: SOFOSBUVIR
     Indication: CHRONIC HEPATITIS C
     Dosage: 400 MG, QD
     Route: 048
     Dates: start: 20151026, end: 20151124
  3. COPEGUS [Suspect]
     Active Substance: RIBAVIRIN
     Indication: CHRONIC HEPATITIS C
     Dosage: 600 MG, UNK
     Route: 048
     Dates: start: 20151026, end: 20151124
  4. AMLODIN [Concomitant]
     Active Substance: AMLODIPINE BESYLATE
     Dosage: UNK
     Route: 065
  5. DIART [Concomitant]
     Active Substance: AZOSEMIDE
     Dosage: UNK
     Route: 065
  6. ASPARA                             /00520101/ [Concomitant]
     Dosage: UNK
     Route: 065
  7. TOCLASE                            /00184902/ [Concomitant]
     Dosage: UNK
     Route: 065

REACTIONS (5)
  - Jaundice [Recovered/Resolved]
  - Hepatic encephalopathy [Recovered/Resolved]
  - Hyperalbuminaemia [Recovered/Resolved]
  - Anaemia [Recovered/Resolved]
  - Renal impairment [Recovered/Resolved]

NARRATIVE: CASE EVENT DATE: 20151109
